FAERS Safety Report 16827041 (Version 1)
Quarter: 2019Q3

REPORT INFORMATION
  Report Type: Report from Study
  Country: NL (occurrence: NL)
  Receive Date: 20190919
  Receipt Date: 20190919
  Transmission Date: 20191005
  Serious: Yes (Hospitalization, Other)
  Sender: FDA-Public Use
  Company Number: NL-MYLANLABS-2019M1086954

PATIENT
  Age: 36 Year
  Sex: Male

DRUGS (12)
  1. PREDNISOLONE. [Suspect]
     Active Substance: PREDNISOLONE
     Indication: PRODUCT USED FOR UNKNOWN INDICATION
     Dosage: 106 MILLIGRAM, QD (106 MG, QD)
     Route: 048
     Dates: start: 20150115, end: 20150122
  2. PREDNISOLONE. [Suspect]
     Active Substance: PREDNISOLONE
     Dosage: 110 MILLIGRAM (110 MG,UNK)
     Route: 048
     Dates: start: 20150407, end: 20150409
  3. VINCRISTINE SULFATE. [Suspect]
     Active Substance: VINCRISTINE SULFATE
     Dosage: 2 MILLIGRAM (2 MG,UNK)
     Route: 065
     Dates: start: 20150407
  4. DEXAMETHASONE. [Suspect]
     Active Substance: DEXAMETHASONE
     Indication: PRODUCT USED FOR UNKNOWN INDICATION
     Dosage: 4 MILLIGRAM (4 MG,UNK)
     Route: 037
     Dates: start: 20150408, end: 20150408
  5. METHOTREXATE. [Suspect]
     Active Substance: METHOTREXATE
     Dosage: 15 MILLIGRAM
     Route: 037
     Dates: start: 20150408, end: 20150408
  6. MERCAPTOPURINE. [Suspect]
     Active Substance: MERCAPTOPURINE
     Indication: ACUTE LYMPHOCYTIC LEUKAEMIA
     Dosage: 150 MILLIGRAM (150 MG,UNK)
     Route: 065
     Dates: start: 20150407, end: 20150409
  7. CLOFARABINE. [Suspect]
     Active Substance: CLOFARABINE
     Indication: ACUTE LYMPHOCYTIC LEUKAEMIA
     Dosage: 80 MG,UNK
     Route: 065
     Dates: start: 20150108
  8. PEG/L-ASPARAGINASE [Suspect]
     Active Substance: PEGASPARGASE
     Indication: PRODUCT USED FOR UNKNOWN INDICATION
     Dosage: UNK UNK, QD (2650, QD)
     Route: 042
     Dates: start: 20150115, end: 20150115
  9. METHOTREXATE. [Suspect]
     Active Substance: METHOTREXATE
     Indication: PRODUCT USED FOR UNKNOWN INDICATION
     Dosage: 1335 MILLIGRAM (1335 MG,UNK)
     Route: 042
     Dates: start: 20150407, end: 20150409
  10. VINCRISTINE SULFATE. [Suspect]
     Active Substance: VINCRISTINE SULFATE
     Indication: PRODUCT USED FOR UNKNOWN INDICATION
     Dosage: 2 MG, QD
     Route: 065
     Dates: start: 20150115, end: 20150122
  11. METHOTREXATE. [Suspect]
     Active Substance: METHOTREXATE
     Dosage: 1200 MILLIGRAM (1200 MG,UNK)
     Route: 042
     Dates: start: 20150407, end: 20180407
  12. DAUNORUBICINE [Suspect]
     Active Substance: DAUNORUBICIN
     Indication: PRODUCT USED FOR UNKNOWN INDICATION
     Dosage: UNK UNK, QD (106 UNK, QD)
     Route: 065
     Dates: start: 20150122, end: 20150122

REACTIONS (2)
  - Hepatotoxicity [Recovered/Resolved]
  - Acute kidney injury [Recovered/Resolved]

NARRATIVE: CASE EVENT DATE: 20150123
